FAERS Safety Report 14274548 (Version 2)
Quarter: 2018Q1

REPORT INFORMATION
  Report Type: Spontaneous
  Country: GB (occurrence: GB)
  Receive Date: 20171211
  Receipt Date: 20180216
  Transmission Date: 20180508
  Serious: Yes (Hospitalization)
  Sender: FDA-Public Use
  Company Number: GB-MYLANLABS-2017M1077426

PATIENT
  Age: 48 Year
  Sex: Male

DRUGS (5)
  1. CLOZARIL [Suspect]
     Active Substance: CLOZAPINE
     Indication: SCHIZOPHRENIA
     Dosage: 450 MG, PM
     Route: 048
     Dates: start: 20000405, end: 20171114
  2. VITAMIN B COMPOUND STRONG [Concomitant]
     Indication: ALCOHOL USE
     Dosage: 2 DF, QD
     Route: 048
     Dates: end: 20171114
  3. CLOZARIL [Suspect]
     Active Substance: CLOZAPINE
     Dosage: UNK
     Route: 048
  4. SERTRALINE [Concomitant]
     Active Substance: SERTRALINE HYDROCHLORIDE
     Indication: DEPRESSION
     Dosage: 100 MG, AM
     Route: 048
     Dates: start: 20170822, end: 20171114
  5. THIAMINE. [Concomitant]
     Active Substance: THIAMINE
     Indication: ALCOHOL USE
     Dosage: 100 MG, TID
     Route: 048
     Dates: end: 20171114

REACTIONS (3)
  - Appendicitis [Recovered/Resolved]
  - Intestinal obstruction [Unknown]
  - Small intestinal perforation [Unknown]

NARRATIVE: CASE EVENT DATE: 20171114
